FAERS Safety Report 4380993-1 (Version None)
Quarter: 2004Q2

REPORT INFORMATION
  Report Type: 
  Country: None (occurrence: None)
  Receive Date: 20040614
  Receipt Date: 20040608
  Transmission Date: 20050107
  Serious: Yes (Life-Threatening, Hospitalization, Disabling)
  Sender: FDA-Public Use
  Company Number: HQWYE463618FEB03

PATIENT
  Age: 83 Year
  Sex: Male

DRUGS (3)
  1. TAZOCIN (PIPERACILLIN/TAZOBACTAM, INJECTION) [Suspect]
     Indication: PYELONEPHRITIS ACUTE
     Dosage: 5 GRAMS DAILY
     Route: 041
     Dates: start: 20030131, end: 20030204
  2. BAYMYCARD (NISOLDIPINE) [Concomitant]
  3. ENALAPRIL MALEATE [Concomitant]

REACTIONS (4)
  - BLOOD PRESSURE DECREASED [None]
  - CONDITION AGGRAVATED [None]
  - DUODENAL ULCER [None]
  - RENAL FAILURE ACUTE [None]
